FAERS Safety Report 15708877 (Version 3)
Quarter: 2019Q3

REPORT INFORMATION
  Report Type: Report from Study
  Country: KR (occurrence: KR)
  Receive Date: 20181211
  Receipt Date: 20190830
  Transmission Date: 20191004
  Serious: Yes (Death, Hospitalization)
  Sender: FDA-Public Use
  Company Number: KR-COLLEGIUM PHARMACEUTICAL, INC.-KR-2018COL014611

PATIENT
  Age: 69 Year
  Sex: Male

DRUGS (28)
  1. DILATREND [Concomitant]
     Active Substance: CARVEDILOL
     Indication: HYPERTENSION
     Dosage: UNK
     Dates: start: 20180223, end: 20180314
  2. PHOSTEN [Concomitant]
     Indication: PROPHYLAXIS
     Dosage: UNK
     Dates: start: 20180224, end: 20180406
  3. VANCOMYCIN [Concomitant]
     Active Substance: VANCOMYCIN
     Indication: PNEUMONIA
     Dosage: UNK
     Dates: start: 20180313, end: 20180410
  4. DISODIUM PAMIDRONATE [Concomitant]
     Active Substance: PAMIDRONATE DISODIUM
     Indication: HYPOPHAGIA
     Dosage: UNK
     Dates: start: 20180125, end: 20180402
  5. CANCIDAS [Concomitant]
     Active Substance: CASPOFUNGIN ACETATE
     Indication: ORAL CANDIDIASIS
     Dosage: UNK
     Dates: start: 20180314, end: 20180326
  6. GANATON [Concomitant]
     Active Substance: ITOPRIDE
     Indication: GASTROINTESTINAL DISORDER PROPHYLAXIS
     Dosage: UNK
     Dates: start: 20180325, end: 20180406
  7. URUSA [Concomitant]
     Active Substance: URSODIOL
     Indication: PROPHYLAXIS
     Dosage: UNK
     Dates: start: 20180125, end: 20180406
  8. CASODEX [Concomitant]
     Active Substance: BICALUTAMIDE
     Indication: PROSTATE CANCER
     Dosage: UNK
     Dates: start: 20180131, end: 20180410
  9. COTRIM [Concomitant]
     Active Substance: SULFAMETHOXAZOLE\TRIMETHOPRIM
     Indication: PRODUCT USED FOR UNKNOWN INDICATION
     Dosage: UNK
     Dates: start: 20180327, end: 20180409
  10. TABACTAM [Concomitant]
     Active Substance: PIPERACILLIN SODIUM\TAZOBACTAM SODIUM
     Indication: ORAL CANDIDIASIS
     Dosage: UNK
     Dates: start: 20180223, end: 20180309
  11. DICLOMOL                           /00372302/ [Concomitant]
     Indication: PAIN
     Dosage: UNK
     Dates: start: 20180207, end: 20180213
  12. NUCYNTA ER [Suspect]
     Active Substance: TAPENTADOL HYDROCHLORIDE
     Indication: PAIN
     Dosage: 50 MG, BID
     Route: 048
     Dates: start: 20180125, end: 20180129
  13. ULTRACET [Concomitant]
     Active Substance: ACETAMINOPHEN\TRAMADOL HYDROCHLORIDE
     Indication: PAIN
     Dosage: UNK
     Dates: start: 20180120, end: 20180406
  14. LANSTON [Concomitant]
     Active Substance: LANSOPRAZOLE
     Indication: GASTROINTESTINAL DISORDER PROPHYLAXIS
     Dosage: UNK
     Dates: start: 20180119, end: 20180406
  15. SERETIDE [Concomitant]
     Active Substance: FLUTICASONE PROPIONATE\SALMETEROL XINAFOATE
     Indication: CHRONIC OBSTRUCTIVE PULMONARY DISEASE
     Dosage: UNK
     Dates: start: 20180126, end: 20180410
  16. MEROPENEM. [Concomitant]
     Active Substance: MEROPENEM
     Indication: INFECTION PROPHYLAXIS
     Dosage: UNK
     Dates: start: 20180310, end: 20180326
  17. SINGULAIR [Concomitant]
     Active Substance: MONTELUKAST SODIUM
     Indication: CHRONIC OBSTRUCTIVE PULMONARY DISEASE
     Dosage: UNK
     Dates: start: 20180127, end: 20180410
  18. AMLODIPINE [Concomitant]
     Active Substance: AMLODIPINE BESYLATE
     Indication: HYPERTENSION
     Dosage: UNK
     Dates: start: 20180119, end: 20180314
  19. DICLOMOL                           /00372302/ [Concomitant]
     Dosage: UNK
     Dates: start: 20180223, end: 20180301
  20. NUCYNTA ER [Suspect]
     Active Substance: TAPENTADOL HYDROCHLORIDE
     Dosage: 100 MG, BID
     Route: 048
     Dates: start: 20180130, end: 20180410
  21. APETROL ES [Concomitant]
     Indication: DECREASED APPETITE
     Dosage: UNK
     Dates: start: 20180126, end: 20180314
  22. SPIRIVA [Concomitant]
     Active Substance: TIOTROPIUM BROMIDE MONOHYDRATE
     Indication: CHRONIC OBSTRUCTIVE PULMONARY DISEASE
     Dosage: UNK
     Dates: start: 20180126, end: 20180410
  23. DENOGAN [Concomitant]
     Active Substance: PROPACETAMOL HYDROCHLORIDE
     Indication: PNEUMONIA
     Dosage: UNK
     Dates: start: 20180408, end: 20180410
  24. MEROPENEM. [Concomitant]
     Active Substance: MEROPENEM
     Dosage: UNK
     Dates: start: 20180408, end: 20180409
  25. VFEND [Concomitant]
     Active Substance: VORICONAZOLE
     Indication: ORAL CANDIDIASIS
     Dosage: UNK
     Dates: start: 20180327, end: 20180402
  26. ASIMA [Concomitant]
     Active Substance: DOXOFYLLINE
     Indication: PRODUCT USED FOR UNKNOWN INDICATION
     Dosage: UNK
     Dates: start: 20180302, end: 20180410
  27. EPROSARTAN MESYLATE. [Concomitant]
     Active Substance: EPROSARTAN MESYLATE
     Indication: HYPERTENSION
     Dosage: UNK
     Dates: start: 20180119, end: 20180314
  28. PMS-NYSTATIN [Concomitant]
     Indication: ORAL CANDIDIASIS
     Dosage: UNK
     Dates: start: 20180207, end: 20180314

REACTIONS (2)
  - Malignant neoplasm progression [Fatal]
  - Asthenia [Not Recovered/Not Resolved]

NARRATIVE: CASE EVENT DATE: 20180216
